FAERS Safety Report 4433528-9 (Version None)
Quarter: 2004Q3

REPORT INFORMATION
  Report Type: 
  Country: None (occurrence: None)
  Receive Date: 20040826
  Receipt Date: 20040820
  Transmission Date: 20050211
  Serious: Yes (Other)
  Sender: FDA-Public Use
  Company Number: 200418261GDDC

PATIENT
  Age: 30 Year
  Sex: Female

DRUGS (1)
  1. CLOMID [Suspect]
     Indication: OVARIAN FAILURE

REACTIONS (6)
  - ABORTION SPONTANEOUS [None]
  - BENIGN INTRACRANIAL HYPERTENSION [None]
  - COMPLICATIONS OF MATERNAL EXPOSURE TO THERAPEUTIC DRUGS [None]
  - MATERNAL DRUGS AFFECTING FOETUS [None]
  - PREGNANCY [None]
  - VISUAL DISTURBANCE [None]
